FAERS Safety Report 4825387-7 (Version None)
Quarter: 2005Q4

REPORT INFORMATION
  Report Type: 
  Country: None (occurrence: None)
  Receive Date: 20051111
  Receipt Date: 20051028
  Transmission Date: 20060501
  Serious: Yes (Hospitalization)
  Sender: FDA-Public Use
  Company Number: NO-MERCK-0511NOR00002

PATIENT
  Age: 58 Year
  Sex: Male

DRUGS (4)
  1. VIOXX [Suspect]
     Indication: OSTEOARTHRITIS
     Route: 048
     Dates: start: 20010402, end: 20041001
  2. ALBUTEROL SULFATE [Concomitant]
     Indication: ASTHMA
     Route: 065
  3. CELECOXIB [Concomitant]
     Indication: OSTEOARTHRITIS
     Route: 048
     Dates: start: 20041002, end: 20050412
  4. DICLOFENAC [Concomitant]
     Route: 048
     Dates: start: 20050413

REACTIONS (5)
  - ARTHROPATHY [None]
  - CORONARY ARTERY STENOSIS [None]
  - HEPATIC STEATOSIS [None]
  - MYOCARDIAL INFARCTION [None]
  - URTICARIA [None]
